FAERS Safety Report 24230601 (Version 1)
Quarter: 2024Q3

REPORT INFORMATION
  Report Type: Spontaneous
  Country: US (occurrence: US)
  Receive Date: 20240821
  Receipt Date: 20240821
  Transmission Date: 20241017
  Serious: Yes (Hospitalization, Other)
  Sender: SANOFI AVENTIS
  Company Number: US-SA-SAC20240819000841

PATIENT
  Age: 70 Year
  Sex: Female

DRUGS (14)
  1. DUPIXENT [Suspect]
     Active Substance: DUPILUMAB
     Indication: Dermatitis atopic
     Dosage: 300 MG, QOW
     Route: 058
  2. HYDROCHLOROTHIAZIDE [Concomitant]
     Active Substance: HYDROCHLOROTHIAZIDE
  3. FAMOTIDINE [Concomitant]
     Active Substance: FAMOTIDINE
  4. FOSAMAX [Concomitant]
     Active Substance: ALENDRONATE SODIUM
  5. GABAPENTIN [Concomitant]
     Active Substance: GABAPENTIN
  6. MONTELUKAST [Concomitant]
     Active Substance: MONTELUKAST SODIUM
  7. SIMVASTATIN [Concomitant]
     Active Substance: SIMVASTATIN
  8. TAMSULOSIN [Concomitant]
     Active Substance: TAMSULOSIN
  9. HYDROXYCHLOROQUINE [Concomitant]
     Active Substance: HYDROXYCHLOROQUINE
  10. LEVOTHYROXINE [Concomitant]
     Active Substance: LEVOTHYROXINE\LEVOTHYROXINE SODIUM
  11. CARBAMAZEPINE [Concomitant]
     Active Substance: CARBAMAZEPINE
  12. OYSTER SHELL [Concomitant]
     Active Substance: OSTREA EDULIS SHELL
  13. ASPIRIN [Concomitant]
     Active Substance: ASPIRIN
  14. VITAMINS NOS [Concomitant]
     Active Substance: VITAMINS

REACTIONS (7)
  - Nephrolithiasis [Not Recovered/Not Resolved]
  - Fall [Unknown]
  - Limb injury [Not Recovered/Not Resolved]
  - Skin exfoliation [Not Recovered/Not Resolved]
  - Skin fissures [Not Recovered/Not Resolved]
  - Rash [Not Recovered/Not Resolved]
  - Drug ineffective [Not Recovered/Not Resolved]

NARRATIVE: CASE EVENT DATE: 20240101
